FAERS Safety Report 22217620 (Version 1)
Quarter: 2023Q2

REPORT INFORMATION
  Report Type: Report from Study
  Country: DK (occurrence: DK)
  Receive Date: 20230417
  Receipt Date: 20230417
  Transmission Date: 20230721
  Serious: Yes (Other)
  Sender: FDA-Public Use
  Company Number: DK-MYLANLABS-2023M1037415

PATIENT
  Age: 16 Year

DRUGS (5)
  1. TRIAMCINOLONE [Suspect]
     Active Substance: TRIAMCINOLONE
     Indication: Vitritis
     Dosage: UNK,1ML OF 40 MG/ML WAS ADMINISTERED IN THE LEFT EYE,SUBTENON
     Route: 065
  2. VORETIGENE NEPARVOVEC [Concomitant]
     Active Substance: VORETIGENE NEPARVOVEC
     Indication: Retinal dystrophy
     Dosage: UNK, 0.15ML IN RIGHT EYE AND 0.25ML IN LEFT EYE
     Dates: start: 202009
  3. VORETIGENE NEPARVOVEC [Concomitant]
     Active Substance: VORETIGENE NEPARVOVEC
     Indication: RPE65 gene mutation
  4. PREDNISOLONE [Concomitant]
     Active Substance: PREDNISOLONE
     Indication: Vitritis
     Dosage: 10 MILLIGRAM, QD
     Route: 048
  5. PREDNISOLONE [Concomitant]
     Active Substance: PREDNISOLONE
     Dosage: 30 MILLIGRAM, QD
     Route: 048

REACTIONS (2)
  - Glaucoma [Recovering/Resolving]
  - Retinal depigmentation [Unknown]
